FAERS Safety Report 17843020 (Version 2)
Quarter: 2020Q3

REPORT INFORMATION
  Report Type: Spontaneous
  Country: US (occurrence: US)
  Receive Date: 20200530
  Receipt Date: 20200702
  Transmission Date: 20201103
  Serious: No
  Sender: FDA-Public Use
  Company Number: NVSC2020US148748

PATIENT
  Sex: Female

DRUGS (1)
  1. VOTRIENT [Suspect]
     Active Substance: PAZOPANIB HYDROCHLORIDE
     Indication: SOFT TISSUE SARCOMA
     Dosage: 400 MG, QD
     Route: 048
     Dates: start: 20200429

REACTIONS (10)
  - Hypoaesthesia [Unknown]
  - Hair colour changes [Unknown]
  - Nausea [Unknown]
  - Swelling face [Unknown]
  - Weight decreased [Unknown]
  - Taste disorder [Unknown]
  - Paraesthesia [Unknown]
  - Decreased appetite [Unknown]
  - Vulvovaginal discomfort [Unknown]
  - Alopecia [Unknown]
